FAERS Safety Report 8318044-6 (Version None)
Quarter: 2012Q2

REPORT INFORMATION
  Report Type: 
  Country: None (occurrence: None)
  Receive Date: 20120427
  Receipt Date: 20120418
  Transmission Date: 20120825
  Serious: Yes (Other)
  Sender: FDA-Public Use
  Company Number: ZA-JNJFOC-20120306374

PATIENT
  Age: 83 Year
  Sex: Female

DRUGS (2)
  1. TRAMADOL HYDROCHLORIDE/ACETAMINOPHEN [Suspect]
     Indication: PAIN IN EXTREMITY
     Dosage: ONE IN THE MORNING AND ONE AT NIGHT
     Route: 048
     Dates: end: 20120301
  2. BLOOD PRESSURE MEDICATION NOS [Concomitant]
     Indication: HYPERTENSION
     Route: 065

REACTIONS (3)
  - PRESYNCOPE [None]
  - DIZZINESS [None]
  - HYPERHIDROSIS [None]
